APPROVED DRUG PRODUCT: CEPHALEXIN
Active Ingredient: CEPHALEXIN
Strength: EQ 125MG BASE/5ML
Dosage Form/Route: FOR SUSPENSION;ORAL
Application: A065081 | Product #001
Applicant: SUN PHARMACEUTICAL INDUSTRIES LTD
Approved: Jul 27, 2001 | RLD: No | RS: No | Type: DISCN